FAERS Safety Report 24875757 (Version 1)
Quarter: 2025Q1

REPORT INFORMATION
  Report Type: Spontaneous
  Country: US (occurrence: US)
  Receive Date: 20250122
  Receipt Date: 20250122
  Transmission Date: 20250409
  Serious: Yes (Death)
  Sender: JOHNSON AND JOHNSON
  Company Number: US-JNJFOC-20250161854

PATIENT
  Age: 50 Year
  Sex: Male

DRUGS (4)
  1. ACETAMINOPHEN [Suspect]
     Active Substance: ACETAMINOPHEN
     Indication: Poisoning deliberate
     Route: 065
  2. DEXTROMETHORPHAN HYDROBROMIDE [Suspect]
     Active Substance: DEXTROMETHORPHAN HYDROBROMIDE
     Indication: Poisoning deliberate
     Route: 065
  3. FENTANYL [Suspect]
     Active Substance: FENTANYL
     Indication: Poisoning deliberate
     Route: 065
  4. BENZOYLECGONINE [Suspect]
     Active Substance: BENZOYLECGONINE
     Indication: Poisoning deliberate
     Route: 065

REACTIONS (2)
  - Toxicity to various agents [Fatal]
  - Intentional product misuse [Fatal]
